FAERS Safety Report 8223989-1 (Version None)
Quarter: 2012Q1

REPORT INFORMATION
  Report Type: 
  Country: None (occurrence: None)
  Receive Date: 20120321
  Receipt Date: 20120315
  Transmission Date: 20120608
  Serious: Yes (Hospitalization)
  Sender: FDA-Public Use
  Company Number: PHHY2012FR015068

PATIENT
  Sex: Male
  Weight: 80 kg

DRUGS (2)
  1. GLEEVEC [Suspect]
     Dosage: UNK
  2. GLEEVEC [Suspect]
     Indication: MYELOID LEUKAEMIA
     Dosage: 600 MG, DAILY
     Route: 048
     Dates: start: 20001101, end: 20080601

REACTIONS (1)
  - ERYSIPELAS [None]
